FAERS Safety Report 23122707 (Version 2)
Quarter: 2024Q1

REPORT INFORMATION
  Report Type: Spontaneous
  Country: US (occurrence: US)
  Receive Date: 20231030
  Receipt Date: 20240205
  Transmission Date: 20240410
  Serious: No
  Sender: FDA-Public Use
  Company Number: US-UCBSA-2023015794

PATIENT
  Age: 28 Year
  Sex: Female

DRUGS (4)
  1. LACOSAMIDE [Suspect]
     Active Substance: LACOSAMIDE
     Indication: Seizure
     Dosage: 150 MILLIGRAM, 2X/DAY (BID)
  2. LEVETIRACETAM [Suspect]
     Active Substance: LEVETIRACETAM
     Indication: Seizure
     Dosage: 1750 MILLIGRAM, 2X/DAY (BID)
  3. LEVETIRACETAM [Suspect]
     Active Substance: LEVETIRACETAM
     Indication: Off label use
  4. BEVACIZUMAB [Concomitant]
     Active Substance: BEVACIZUMAB
     Indication: Neoplasm malignant
     Dosage: UNK

REACTIONS (2)
  - Multiple-drug resistance [Unknown]
  - Off label use [Unknown]
